FAERS Safety Report 5525473-2 (Version None)
Quarter: 2007Q4

REPORT INFORMATION
  Report Type: 
  Country: None (occurrence: None)
  Receive Date: 20071119
  Receipt Date: 20071108
  Transmission Date: 20080405
  Serious: Yes (Hospitalization)
  Sender: FDA-Public Use
  Company Number: GXKR2007ES09640

PATIENT
  Age: 58 Year
  Sex: Female

DRUGS (6)
  1. PARACETAMOL (NGX)(PARACETAMOL) UNKNOWN [Suspect]
     Indication: OSTEOARTHRITIS
     Dosage: 650 MG, QW4,
  2. PAROXETINE HCL [Suspect]
  3. LORAZEPAM [Concomitant]
  4. ATENOLOL [Concomitant]
  5. HYDROXYZINE [Concomitant]
  6. VALERIAN (VALERIANA OFFICINALIS) [Concomitant]

REACTIONS (1)
  - HEPATOTOXICITY [None]
